FAERS Safety Report 6296964-4 (Version None)
Quarter: 2009Q3

REPORT INFORMATION
  Report Type: 
  Country: None (occurrence: None)
  Receive Date: 20090804
  Receipt Date: 20090722
  Transmission Date: 20100115
  Serious: Yes (Hospitalization)
  Sender: FDA-Public Use
  Company Number: US-ELI_LILLY_AND_COMPANY-US200906000854

PATIENT
  Sex: Female

DRUGS (5)
  1. UNKNOWN PRODUCT [Suspect]
  2. IBUPROFEN [Concomitant]
  3. ASPIRIN [Concomitant]
  4. METOPROLOL SUCCINATE [Suspect]
  5. LEXAPRO [Concomitant]

REACTIONS (6)
  - CEREBROVASCULAR ACCIDENT [None]
  - CONFUSIONAL STATE [None]
  - HAEMORRHAGE [None]
  - HYPOAESTHESIA ORAL [None]
  - OFF LABEL USE [None]
  - VISION BLURRED [None]
